FAERS Safety Report 7115975-X (Version None)
Quarter: 2010Q4

REPORT INFORMATION
  Report Type: 
  Country: None (occurrence: None)
  Receive Date: 20101122
  Receipt Date: 20101115
  Transmission Date: 20110411
  Serious: Yes (Hospitalization)
  Sender: FDA-Public Use
  Company Number: GR-ABBOTT-10P-066-0656465-00

PATIENT
  Sex: Male
  Weight: 92 kg

DRUGS (5)
  1. HUMIRA [Suspect]
     Indication: PSORIASIS
     Route: 058
     Dates: start: 20100712, end: 20100712
  2. METFORMIN [Concomitant]
     Indication: DIABETES MELLITUS
     Route: 048
  3. TELMISARTAN [Concomitant]
     Indication: HYPERTENSION
  4. ISONIAZID W/RIFAMPICIN [Concomitant]
     Indication: ANTIBIOTIC PROPHYLAXIS
     Dosage: 600+300 MG DAILY
     Dates: start: 20100630
  5. VITAMIN B6 [Concomitant]
     Indication: ANTIBIOTIC PROPHYLAXIS
     Dosage: 1/4 TAB DAILY
     Route: 048
     Dates: start: 20100630

REACTIONS (7)
  - ANAEMIA [None]
  - EXTRADURAL HAEMATOMA [None]
  - MUSCLE CONTRACTIONS INVOLUNTARY [None]
  - PARAPLEGIA [None]
  - PYREXIA [None]
  - SPINAL CORD ISCHAEMIA [None]
  - SPINAL HAEMATOMA [None]
